FAERS Safety Report 9366802 (Version 2)
Quarter: 2013Q2

REPORT INFORMATION
  Report Type: Spontaneous
  Country: DK (occurrence: FR)
  Receive Date: 20130625
  Receipt Date: 20130627
  Transmission Date: 20140414
  Serious: Yes (Life-Threatening)
  Sender: FDA-Public Use
  Company Number: FR-FRI-1000046092

PATIENT
  Age: 73 Year
  Sex: Male

DRUGS (3)
  1. ESCITALOPRAM [Suspect]
     Indication: TREMOR
     Dosage: 1 DF
     Route: 048
     Dates: start: 20130302, end: 20130502
  2. ESCITALOPRAM [Suspect]
     Dosage: 10 MG
  3. DEPAKINE [Concomitant]
     Indication: EPILEPSY
     Dosage: 1 DF
     Route: 048

REACTIONS (5)
  - Torsade de pointes [Recovered/Resolved with Sequelae]
  - Atrioventricular block [Recovered/Resolved with Sequelae]
  - Bradycardia [Recovered/Resolved with Sequelae]
  - Malaise [Recovered/Resolved with Sequelae]
  - Off label use [Recovered/Resolved with Sequelae]
